FAERS Safety Report 10229915 (Version 1)
Quarter: 2014Q2

REPORT INFORMATION
  Report Type: Spontaneous
  Country: US (occurrence: None)
  Receive Date: 20140609
  Receipt Date: 20140609
  Transmission Date: 20141212
  Serious: Yes (Hospitalization)
  Sender: FDA-Public Use
  Company Number: UNT-2014-001414

PATIENT
  Age: 13 Year
  Sex: Male
  Weight: 32.2 kg

DRUGS (3)
  1. REMODULIN [Suspect]
     Indication: COR PULMONALE CHRONIC
     Route: 042
     Dates: start: 20090402
  2. TRACLEER [Suspect]
     Indication: COR PULMONALE CHRONIC
  3. ADCIRCA (TADALAFIL) [Concomitant]
     Indication: COR PULMONALE CHRONIC

REACTIONS (3)
  - Gastrointestinal haemorrhage [None]
  - Hypotension [None]
  - Cardiac disorder [None]
